FAERS Safety Report 11037966 (Version 3)
Quarter: 2015Q3

REPORT INFORMATION
  Report Type: Spontaneous
  Country: US (occurrence: US)
  Receive Date: 20150416
  Receipt Date: 20150818
  Transmission Date: 20151125
  Serious: Yes (Death, Hospitalization, Other)
  Sender: FDA-Public Use
  Company Number: US-009507513-1504USA015485

PATIENT
  Sex: Male
  Weight: 104.31 kg

DRUGS (3)
  1. BYETTA [Suspect]
     Active Substance: EXENATIDE
     Indication: TYPE 2 DIABETES MELLITUS
     Dosage: 10 MICROGRAM, BID
     Dates: start: 20070508, end: 200708
  2. JANUVIA [Suspect]
     Active Substance: SITAGLIPTIN PHOSPHATE
     Indication: TYPE 2 DIABETES MELLITUS
     Dosage: 100 MG, QD
     Route: 048
     Dates: start: 20080426, end: 20091027
  3. JANUVIA [Suspect]
     Active Substance: SITAGLIPTIN PHOSPHATE
     Dosage: 1/4 DAILY
     Route: 048
     Dates: start: 20101222

REACTIONS (21)
  - Spinal laminectomy [Unknown]
  - Chronic kidney disease [Not Recovered/Not Resolved]
  - Cor pulmonale chronic [Not Recovered/Not Resolved]
  - Diabetic neuropathy [Unknown]
  - Hepatic cyst [Unknown]
  - Hypoglycaemia [Unknown]
  - Wrong technique in product usage process [Unknown]
  - Nephrotic syndrome [Unknown]
  - Diabetic nephropathy [Unknown]
  - Adenocarcinoma pancreas [Fatal]
  - Dementia [Unknown]
  - Radiotherapy [Unknown]
  - Atrial fibrillation [Unknown]
  - Renal cyst [Unknown]
  - Fiducial marker placement [Unknown]
  - Duodenal sphincterotomy [Unknown]
  - Renal failure [Unknown]
  - Hypothyroidism [Unknown]
  - Stent placement [Unknown]
  - Drug hypersensitivity [Unknown]
  - Back pain [Unknown]

NARRATIVE: CASE EVENT DATE: 2008
